FAERS Safety Report 23672318 (Version 1)
Quarter: 2024Q1

REPORT INFORMATION
  Report Type: Spontaneous
  Country: FR (occurrence: FR)
  Receive Date: 20240326
  Receipt Date: 20240326
  Transmission Date: 20240409
  Serious: Yes (Other)
  Sender: FDA-Public Use
  Company Number: None

PATIENT
  Age: 32 Year
  Sex: Female

DRUGS (23)
  1. LENALIDOMIDE [Suspect]
     Active Substance: LENALIDOMIDE
     Indication: Systemic lupus erythematosus
     Dosage: UNK
  2. LENALIDOMIDE [Suspect]
     Active Substance: LENALIDOMIDE
     Indication: Systemic lupus erythematosus
  3. RITUXIMAB [Suspect]
     Active Substance: RITUXIMAB
     Indication: Systemic lupus erythematosus
     Dosage: UNK
  4. RITUXIMAB [Suspect]
     Active Substance: RITUXIMAB
     Indication: Systemic lupus erythematosus
  5. THALIDOMIDE [Suspect]
     Active Substance: THALIDOMIDE
     Indication: Systemic lupus erythematosus
     Dosage: UNK
  6. THALIDOMIDE [Suspect]
     Active Substance: THALIDOMIDE
     Indication: Systemic lupus erythematosus
  7. METHOTREXATE [Suspect]
     Active Substance: METHOTREXATE
     Indication: Systemic lupus erythematosus
  8. METHOTREXATE [Suspect]
     Active Substance: METHOTREXATE
     Indication: Systemic lupus erythematosus
  9. HYDROXYCHLOROQUINE [Suspect]
     Active Substance: HYDROXYCHLOROQUINE
     Indication: Systemic lupus erythematosus
     Dosage: 400 MG, 1D
  10. HYDROXYCHLOROQUINE [Suspect]
     Active Substance: HYDROXYCHLOROQUINE
     Indication: Systemic lupus erythematosus
  11. HYDROXYCHLOROQUINE [Suspect]
     Active Substance: HYDROXYCHLOROQUINE
  12. BELIMUMAB [Suspect]
     Active Substance: BELIMUMAB
     Indication: Systemic lupus erythematosus
     Dosage: 10 MG/KG PER MONTH
  13. BELIMUMAB [Suspect]
     Active Substance: BELIMUMAB
     Indication: Systemic lupus erythematosus
  14. USTEKINUMAB [Suspect]
     Active Substance: USTEKINUMAB
     Indication: Systemic lupus erythematosus
     Dosage: UNK
  15. USTEKINUMAB [Suspect]
     Active Substance: USTEKINUMAB
     Indication: Systemic lupus erythematosus
  16. ANIFROLUMAB [Suspect]
     Active Substance: ANIFROLUMAB
     Indication: Systemic lupus erythematosus
     Dosage: THREE INFUSIONS
     Dates: start: 202111
  17. ANIFROLUMAB [Suspect]
     Active Substance: ANIFROLUMAB
     Indication: Systemic lupus erythematosus
  18. CORTICOSTEROID NOS [Suspect]
     Active Substance: CORTICOSTEROID NOS
     Indication: Systemic lupus erythematosus
  19. CORTICOSTEROID NOS [Suspect]
     Active Substance: CORTICOSTEROID NOS
  20. TOZINAMERAN [Concomitant]
     Active Substance: TOZINAMERAN
     Indication: Prophylaxis
     Dosage: UNK
  21. TOZINAMERAN [Concomitant]
     Active Substance: TOZINAMERAN
     Indication: COVID-19 immunisation
     Dosage: UNK
     Dates: start: 202107
  22. TOZINAMERAN [Concomitant]
     Active Substance: TOZINAMERAN
  23. Tozinameran vaccine [mRNA BNT162b2] [Concomitant]
     Indication: COVID-19 immunisation
     Dates: start: 202107

REACTIONS (2)
  - Treatment failure [Unknown]
  - Drug ineffective [Unknown]
